FAERS Safety Report 16025754 (Version 1)
Quarter: 2019Q1

REPORT INFORMATION
  Report Type: Spontaneous
  Country: IT (occurrence: IT)
  Receive Date: 20190302
  Receipt Date: 20190302
  Transmission Date: 20190418
  Serious: Yes (Hospitalization)
  Sender: FDA-Public Use
  Company Number: IT-ACCORD-109997

PATIENT
  Age: 78 Year
  Sex: Female

DRUGS (9)
  1. METFORMIN [Suspect]
     Active Substance: METFORMIN HYDROCHLORIDE
     Indication: DIABETES MELLITUS
     Route: 048
     Dates: start: 20180101, end: 20180811
  2. PLAUNAC [Suspect]
     Active Substance: OLMESARTAN MEDOXOMIL
     Indication: HYPERTENSION
     Dosage: STRENGTH 10 MG
     Route: 048
     Dates: start: 20180101, end: 20180811
  3. NADOLOL. [Concomitant]
     Active Substance: NADOLOL
  4. RITMODAN RETARD [Concomitant]
  5. SIMVASTATIN. [Suspect]
     Active Substance: SIMVASTATIN
     Indication: HYPERCHOLESTEROLAEMIA
     Route: 048
     Dates: start: 20180101, end: 20180811
  6. MEDROL [Concomitant]
     Active Substance: METHYLPREDNISOLONE
     Dosage: STRENGTH 4 MG
  7. XARELTO [Concomitant]
     Active Substance: RIVAROXABAN
  8. ALDACTONE [Suspect]
     Active Substance: SPIRONOLACTONE
     Indication: HYPERTENSION
     Dosage: STRENGTH 100 MG
     Route: 048
     Dates: start: 20180101, end: 20180811
  9. PANTORC [Concomitant]
     Active Substance: PANTOPRAZOLE SODIUM
     Dosage: 20 MG

REACTIONS (6)
  - Hyperhidrosis [Unknown]
  - Pain in extremity [Unknown]
  - Pulmonary oedema [Unknown]
  - Asthenia [Unknown]
  - Hepatorenal failure [Unknown]
  - Dyspnoea [Unknown]

NARRATIVE: CASE EVENT DATE: 20180811
